FAERS Safety Report 7867166-2 (Version None)
Quarter: 2011Q4

REPORT INFORMATION
  Report Type: 
  Country: None (occurrence: None)
  Receive Date: 20111028
  Receipt Date: 20111018
  Transmission Date: 20120403
  Serious: Yes (Hospitalization)
  Sender: FDA-Public Use
  Company Number: US-BAYER-200943227NA

PATIENT
  Age: 38 Year
  Sex: Female
  Weight: 54.422 kg

DRUGS (11)
  1. YASMIN [Suspect]
     Indication: PRODUCT USED FOR UNKNOWN INDICATION
     Dosage: UNK
     Dates: start: 20050101, end: 20070101
  2. CARAFATE [Concomitant]
  3. LEVSIN [Concomitant]
  4. MIRALAX [Concomitant]
  5. YAZ [Suspect]
     Indication: PRODUCT USED FOR UNKNOWN INDICATION
     Dosage: UNK
     Dates: start: 20050101, end: 20070101
  6. FLUOXETINE HCL [Concomitant]
  7. AMITRIPTYLINE HCL [Concomitant]
     Dosage: UNK
     Dates: start: 20050101
  8. LEVOXYL [Concomitant]
     Indication: HYPOTHYROIDISM
     Dosage: 137 ?G, UNK
     Dates: start: 19950101
  9. ZELNORM [Concomitant]
  10. SENOKOT [Concomitant]
  11. NSAID'S [Concomitant]

REACTIONS (5)
  - WEIGHT DECREASED [None]
  - ABDOMINAL PAIN [None]
  - VAGINAL HAEMORRHAGE [None]
  - CHOLELITHIASIS [None]
  - CHOLECYSTITIS CHRONIC [None]
